FAERS Safety Report 9625576 (Version 1)
Quarter: 2013Q4

REPORT INFORMATION
  Report Type: Spontaneous
  Country: PL (occurrence: PL)
  Receive Date: 20131016
  Receipt Date: 20131016
  Transmission Date: 20140711
  Serious: Yes (Other)
  Sender: FDA-Public Use
  Company Number: PHHY2013PL114265

PATIENT
  Age: 47 Year
  Sex: Male
  Weight: 108 kg

DRUGS (6)
  1. CICLOSPORIN [Suspect]
     Indication: PSORIASIS
     Dosage: 200 MG, QD
     Route: 048
     Dates: start: 20110418, end: 20111018
  2. CICLOSPORIN [Suspect]
     Dosage: 150 MG, QD
     Route: 048
     Dates: start: 20110418, end: 20111018
  3. METHOTREXATE [Suspect]
     Indication: PSORIASIS
     Dosage: 30 MG, UNK
     Route: 048
     Dates: start: 20110314, end: 20120724
  4. METHOTREXATE [Suspect]
     Dosage: 15 MG, UNK
     Route: 048
     Dates: start: 20110314, end: 20120724
  5. FOLIC ACID [Concomitant]
  6. FENOFIBRATE [Concomitant]

REACTIONS (1)
  - Mucosal erosion [Recovered/Resolved]
